FAERS Safety Report 8457111-3 (Version None)
Quarter: 2012Q2

REPORT INFORMATION
  Report Type: 
  Country: None (occurrence: None)
  Receive Date: 20120621
  Receipt Date: 20120614
  Transmission Date: 20120825
  Serious: Yes (Hospitalization)
  Sender: FDA-Public Use
  Company Number: DE-B.I. PHARMACEUTICALS,INC./RIDGEFIELD-2012-EU-03028EU

PATIENT
  Sex: Female
  Weight: 74 kg

DRUGS (7)
  1. DABIGATRAN [Suspect]
     Indication: HEART VALVE REPLACEMENT
     Dosage: 300 MG
     Route: 048
     Dates: start: 20120509, end: 20120605
  2. ALDACTONE [Concomitant]
     Indication: OLIGURIA
     Dosage: 100 MG
     Route: 048
     Dates: start: 20120511
  3. PANTOPRAZOLE [Concomitant]
     Indication: PROPHYLAXIS
     Dosage: 40 MG
     Dates: start: 20120508
  4. ASPIRIN [Concomitant]
     Indication: ARRHYTHMIA
     Dosage: 100 MG
     Route: 048
     Dates: start: 20120519
  5. PREDNISONE TAB [Concomitant]
     Indication: PERICARDIAL EFFUSION
     Route: 048
     Dates: start: 20120515
  6. METOPROLOL SUCCINATE [Concomitant]
     Indication: ARRHYTHMIA
     Dosage: 2 ANZ
     Route: 048
     Dates: start: 20120516
  7. IBUPROFEN [Concomitant]
     Indication: PERICARDIAL EFFUSION
     Route: 048
     Dates: start: 20120515

REACTIONS (1)
  - CEREBROVASCULAR ACCIDENT [None]
